FAERS Safety Report 11686739 (Version 4)
Quarter: 2016Q1

REPORT INFORMATION
  Report Type: Report from Study
  Country: US (occurrence: US)
  Receive Date: 20151030
  Receipt Date: 20160107
  Transmission Date: 20160525
  Serious: Yes (Hospitalization)
  Sender: FDA-Public Use
  Company Number: US-GILEAD-2015-0179483

PATIENT
  Age: 45 Year
  Sex: Male

DRUGS (5)
  1. AMBRISENTAN [Suspect]
     Active Substance: AMBRISENTAN
     Indication: PULMONARY ARTERIAL HYPERTENSION
     Dosage: 10 MG, QD
     Route: 065
     Dates: start: 20150605
  2. TYVASO [Concomitant]
     Active Substance: TREPROSTINIL
  3. OXYGEN. [Concomitant]
     Active Substance: OXYGEN
  4. WARFARIN [Concomitant]
     Active Substance: WARFARIN
  5. AMBRISENTAN [Suspect]
     Active Substance: AMBRISENTAN
     Indication: SLEEP APNOEA SYNDROME
     Dosage: 10 MG,QD
     Route: 065

REACTIONS (3)
  - Chest pain [Unknown]
  - Cardiac disorder [Unknown]
  - Tracheostomy malfunction [Unknown]
